FAERS Safety Report 18347156 (Version 1)
Quarter: 2020Q4

REPORT INFORMATION
  Report Type: Spontaneous
  Country: CA (occurrence: CA)
  Receive Date: 20201006
  Receipt Date: 20201006
  Transmission Date: 20210114
  Serious: Yes (Other)
  Sender: FDA-Public Use
  Company Number: CA-JNJFOC-20191017363

PATIENT
  Age: 45 Year
  Sex: Female

DRUGS (2)
  1. IMODIUM [Suspect]
     Active Substance: LOPERAMIDE HYDROCHLORIDE
     Indication: DIARRHOEA
     Route: 065
  2. ENTYVIO [Suspect]
     Active Substance: VEDOLIZUMAB
     Route: 065

REACTIONS (12)
  - Nausea [Unknown]
  - Intestinal obstruction [Unknown]
  - Diarrhoea [Unknown]
  - Cough [Unknown]
  - Pain [Unknown]
  - Oropharyngeal pain [Unknown]
  - Pain in extremity [Unknown]
  - Fatigue [Unknown]
  - Viral infection [Unknown]
  - Faecalith [Unknown]
  - Constipation [Unknown]
  - Abdominal rigidity [Unknown]
